FAERS Safety Report 7795609 (Version 5)
Quarter: 2014Q3

REPORT INFORMATION
  Report Type: Spontaneous
  Country: RU (occurrence: RU)
  Receive Date: 20110202
  Receipt Date: 20140902
  Transmission Date: 20150326
  Serious: Yes (Hospitalization, Other)
  Sender: FDA-Public Use
  Company Number: RU-BAYER-2011-007908

PATIENT
  Age: 35 Year
  Sex: Female

DRUGS (4)
  1. ULTRAVIST [Suspect]
     Active Substance: IOPROMIDE
     Indication: FISTULOGRAM
  2. YAZ [Suspect]
     Active Substance: DROSPIRENONE\ETHINYL ESTRADIOL
     Indication: CONTRACEPTION
     Dosage: 1 DF, ONCE
     Route: 048
     Dates: start: 201003
  3. ULTRAVIST [Suspect]
     Active Substance: IOPROMIDE
     Indication: FISTULOGRAM
     Dosage: UNK
     Dates: start: 20110504, end: 20110504
  4. NO-SPA [Suspect]
     Active Substance: DROTAVERINE HYDROCHLORIDE
     Dosage: 80 MG, BID

REACTIONS (12)
  - Haemangioma of liver [Not Recovered/Not Resolved]
  - Tremor [Recovered/Resolved]
  - Epigastric discomfort [Not Recovered/Not Resolved]
  - Fluid retention [Not Recovered/Not Resolved]
  - Body temperature increased [Recovered/Resolved]
  - Abscess [None]
  - Abdominal pain upper [Not Recovered/Not Resolved]
  - Pancreatic disorder [Not Recovered/Not Resolved]
  - Pelvic fluid collection [Not Recovered/Not Resolved]
  - Chills [Recovered/Resolved]
  - Hepatic adenoma [Recovered/Resolved]
  - Pancreatic cyst [Not Recovered/Not Resolved]

NARRATIVE: CASE EVENT DATE: 20110121
